FAERS Safety Report 6764917-5 (Version None)
Quarter: 2010Q2

REPORT INFORMATION
  Report Type: 
  Country: None (occurrence: None)
  Receive Date: 20100610
  Receipt Date: 20100603
  Transmission Date: 20101027
  Serious: Yes (Hospitalization)
  Sender: FDA-Public Use
  Company Number: IT-AMGEN-KDC413898

PATIENT
  Sex: Male

DRUGS (3)
  1. ARANESP [Suspect]
     Indication: RENAL FAILURE CHRONIC
     Route: 042
     Dates: start: 20091112
  2. RAMIPRIL [Suspect]
  3. AMLODIPINE [Suspect]

REACTIONS (2)
  - ARTERIOVENOUS FISTULA THROMBOSIS [None]
  - EMBOLISM [None]
